FAERS Safety Report 20514559 (Version 2)
Quarter: 2022Q1

REPORT INFORMATION
  Report Type: Spontaneous
  Country: US (occurrence: US)
  Receive Date: 20220224
  Receipt Date: 20220301
  Transmission Date: 20220424
  Serious: Yes (Other)
  Sender: FDA-Public Use
  Company Number: US-MLMSERVICE-20220208-3356996-1

PATIENT
  Age: 23 Year
  Sex: Female

DRUGS (3)
  1. ROPIVACAINE HYDROCHLORIDE [Suspect]
     Active Substance: ROPIVACAINE HYDROCHLORIDE
     Indication: Epidural analgesia
     Dosage: UNK
     Route: 064
  2. FENTANYL CITRATE [Suspect]
     Active Substance: FENTANYL CITRATE
     Indication: Epidural analgesia
     Dosage: UNK
     Route: 064
  3. OXYTOCIN [Concomitant]
     Active Substance: OXYTOCIN
     Indication: Labour induction
     Dosage: UNK

REACTIONS (4)
  - Maternal exposure during delivery [Unknown]
  - Tachycardia [Recovered/Resolved]
  - Hypovolaemia [Recovered/Resolved]
  - Hypotension [Unknown]
